FAERS Safety Report 9496878 (Version 2)
Quarter: 2013Q3

REPORT INFORMATION
  Report Type: Spontaneous
  Country: SE (occurrence: SE)
  Receive Date: 20130904
  Receipt Date: 20130913
  Transmission Date: 20140515
  Serious: Yes (Other)
  Sender: FDA-Public Use
  Company Number: SE-EISAI INC-E2007-01301-SPO-SE

PATIENT
  Age: 44 Year
  Sex: Male

DRUGS (20)
  1. FYCOMPA (PERAMPANEL) [Suspect]
     Indication: EPILEPSY
     Dosage: 2 MG DAILY
     Route: 065
  2. FYCOMPA (PERAMPANEL) [Suspect]
     Dosage: 4 MG DAILY
     Route: 065
  3. FYCOMPA (PERAMPANEL) [Suspect]
     Dosage: 6 MG DAILY
     Route: 065
  4. LISKANTIN [Concomitant]
  5. SERTRALIN [Concomitant]
  6. THERALEN [Concomitant]
     Dosage: 40 MG/ML
     Route: 048
  7. NEORGESIC [Concomitant]
     Dosage: 35 MG/450 MG
  8. STESOLID [Concomitant]
  9. CITODON [Concomitant]
  10. TRILEPTAL [Concomitant]
  11. CILAXORAL [Concomitant]
     Dosage: 7.5 MH/ML
     Route: 048
  12. KEPPRA [Concomitant]
  13. FORLAX [Concomitant]
  14. BUVENTOL EASYHALER [Concomitant]
     Dosage: 100 MIKROG/DOS
  15. NEURONTIN [Concomitant]
  16. FLUNITRAZEPAM [Concomitant]
  17. OXASCAND [Concomitant]
  18. NITRAZEPAM [Concomitant]
  19. ALVEDON [Concomitant]
  20. TOILAX [Concomitant]
     Dosage: 10 MG/5ML
     Route: 054

REACTIONS (1)
  - Rash [Not Recovered/Not Resolved]
